FAERS Safety Report 22332482 (Version 1)
Quarter: 2023Q2

REPORT INFORMATION
  Report Type: Spontaneous
  Country: US (occurrence: US)
  Receive Date: 20230517
  Receipt Date: 20230517
  Transmission Date: 20230721
  Serious: Yes (Hospitalization)
  Sender: FDA-Public Use
  Company Number: US-RECORDATI RARE DISEASE INC.-2013000039

PATIENT

DRUGS (6)
  1. CYSTADANE [Suspect]
     Active Substance: BETAINE
     Indication: Methylmalonic acidaemia
     Dosage: UNK, 1 EVERY DAY
     Route: 048
     Dates: start: 20080116
  2. CYSTADANE [Suspect]
     Active Substance: BETAINE
     Dosage: 7 G, QD
     Route: 048
  3. CARNITOR [Concomitant]
     Active Substance: LEVOCARNITINE
     Indication: Homocystinuria
     Dosage: UNK, 1 EVERY DAY
     Dates: start: 200711
  4. HYDROXOCOBALAMIN [Concomitant]
     Active Substance: HYDROXOCOBALAMIN
     Indication: Homocystinuria
     Dosage: UNK, 1 EVERY DAY
     Route: 030
     Dates: start: 200712
  5. L-VALINE [Concomitant]
     Indication: Homocystinuria
     Dosage: UNK, 1 EVERY DAY
     Dates: start: 200908
  6. ONDANSETRON HYDROCHLORIDE [Concomitant]
     Active Substance: ONDANSETRON HYDROCHLORIDE
     Indication: Vomiting
     Dosage: UNK, 1 EVERY DAY
     Route: 048

REACTIONS (11)
  - Urine output decreased [Not Recovered/Not Resolved]
  - Dehydration [Not Recovered/Not Resolved]
  - Pyrexia [Not Recovered/Not Resolved]
  - Overdose [Not Recovered/Not Resolved]
  - Diarrhoea [Not Recovered/Not Resolved]
  - Abdominal pain [Not Recovered/Not Resolved]
  - Nasal congestion [Not Recovered/Not Resolved]
  - Vomiting [Recovered/Resolved]
  - Hypophagia [Not Recovered/Not Resolved]
  - Cough [Not Recovered/Not Resolved]
  - Productive cough [Not Recovered/Not Resolved]

NARRATIVE: CASE EVENT DATE: 20130101
